FAERS Safety Report 9849354 (Version 1)
Quarter: 2014Q1

REPORT INFORMATION
  Report Type: Spontaneous
  Country: US (occurrence: None)
  Receive Date: 20140122
  Receipt Date: 20140122
  Transmission Date: 20141002
  Serious: Yes (Death)
  Sender: FDA-Public Use
  Company Number: B0959105A

PATIENT
  Age: 86 Year
  Sex: Female

DRUGS (7)
  1. PARACETAMOL [Suspect]
     Route: 048
  2. BUPROPION HYDROCHLORIDE [Suspect]
     Route: 048
  3. QUETIAPINE [Suspect]
  4. TOPIRAMATE [Suspect]
  5. DORZOLAMIDE\TIMOLOL [Suspect]
  6. SIMVASTATIN [Suspect]
  7. AMLODIPINE [Suspect]

REACTIONS (1)
  - Exposure via ingestion [None]
